FAERS Safety Report 19291961 (Version 1)
Quarter: 2021Q2

REPORT INFORMATION
  Report Type: Spontaneous
  Country: US (occurrence: US)
  Receive Date: 20210524
  Receipt Date: 20210524
  Transmission Date: 20210717
  Serious: No
  Sender: FDA-Public Use
  Company Number: US-AMGEN-USASP2021076175

PATIENT
  Sex: Male

DRUGS (1)
  1. REPATHA [Suspect]
     Active Substance: EVOLOCUMAB
     Indication: PRODUCT USED FOR UNKNOWN INDICATION
     Dosage: 140 MILLIGRAM, Q2WK
     Route: 065

REACTIONS (5)
  - High density lipoprotein increased [Unknown]
  - Low density lipoprotein increased [Unknown]
  - Chills [Unknown]
  - Blood cholesterol increased [Unknown]
  - Gamma-glutamyltransferase abnormal [Unknown]

NARRATIVE: CASE EVENT DATE: 202012
